FAERS Safety Report 5852348-1 (Version None)
Quarter: 2008Q3

REPORT INFORMATION
  Report Type: 
  Country: None (occurrence: None)
  Receive Date: 20080821
  Receipt Date: 20080813
  Transmission Date: 20090109
  Serious: Yes (Other)
  Sender: FDA-Public Use
  Company Number: US-ROCHE-580958

PATIENT
  Sex: Male

DRUGS (2)
  1. PEGASYS [Suspect]
     Route: 065
     Dates: end: 20070301
  2. RIBAVIRIN [Suspect]
     Route: 065
     Dates: end: 20070301

REACTIONS (1)
  - TESTIS CANCER [None]
